FAERS Safety Report 4745914-8 (Version None)
Quarter: 2005Q3

REPORT INFORMATION
  Report Type: 
  Country: None (occurrence: None)
  Receive Date: 20050816
  Receipt Date: 20050610
  Transmission Date: 20060218
  Serious: Yes (Other)
  Sender: FDA-Public Use
  Company Number: US-GLAXOSMITHKLINE-A0562130A

PATIENT
  Age: 62 Year
  Sex: Female
  Weight: 73.6 kg

DRUGS (2)
  1. LAMICTAL [Suspect]
     Indication: DRUG USE FOR UNKNOWN INDICATION
     Route: 048
  2. DIOVAN [Concomitant]

REACTIONS (5)
  - AMNESIA [None]
  - APHASIA [None]
  - DYSLEXIA [None]
  - HYPOTRICHOSIS [None]
  - URINARY INCONTINENCE [None]
